FAERS Safety Report 13130618 (Version 2)
Quarter: 2017Q1

REPORT INFORMATION
  Report Type: Spontaneous
  Country: US (occurrence: US)
  Receive Date: 20170119
  Receipt Date: 20170123
  Transmission Date: 20170428
  Serious: Yes (Hospitalization, Other)
  Sender: FDA-Public Use
  Company Number: US-TEVA-729462USA

PATIENT
  Sex: Female

DRUGS (2)
  1. HYDROCODONE BITARTRATE AND ACETAMINOPHEN [Suspect]
     Active Substance: ACETAMINOPHEN\HYDROCODONE BITARTRATE
     Route: 065
  2. ALPRAZOLAM. [Suspect]
     Active Substance: ALPRAZOLAM
     Indication: GAIT DISTURBANCE
     Route: 065

REACTIONS (11)
  - Coronary artery disease [Unknown]
  - Atrial fibrillation [Recovered/Resolved]
  - Hypertension [Recovering/Resolving]
  - Deep vein thrombosis [Recovered/Resolved]
  - Dyspnoea [Unknown]
  - Malaise [Unknown]
  - Multiple sclerosis [Unknown]
  - Gait disturbance [Not Recovered/Not Resolved]
  - Adverse event [Unknown]
  - Endotracheal intubation [Recovered/Resolved]
  - Product formulation issue [Unknown]

NARRATIVE: CASE EVENT DATE: 2014
